FAERS Safety Report 4681165-3 (Version None)
Quarter: 2005Q2

REPORT INFORMATION
  Report Type: 
  Country: None (occurrence: None)
  Receive Date: 20050603
  Receipt Date: 20050428
  Transmission Date: 20051028
  Serious: Yes (Death, Hospitalization)
  Sender: FDA-Public Use
  Company Number: NA-BRISTOL-MYERS SQUIBB COMPANY-12949889

PATIENT
  Age: 41 Year
  Sex: Male

DRUGS (4)
  1. STOCRIN [Suspect]
     Indication: HIV INFECTION
     Route: 048
     Dates: start: 20050202, end: 20050413
  2. STAVUDINE [Suspect]
     Indication: HIV INFECTION
     Route: 048
     Dates: start: 20050202, end: 20050413
  3. LAMIVUDINE [Suspect]
     Indication: HIV INFECTION
     Route: 048
     Dates: start: 20050202, end: 20050413
  4. PYRIDOXINE HCL [Concomitant]
     Route: 048
     Dates: start: 20050131

REACTIONS (4)
  - ANAEMIA [None]
  - HYPOPROTEINAEMIA [None]
  - JAUNDICE [None]
  - PULMONARY TUBERCULOSIS [None]
